FAERS Safety Report 8003139-7 (Version None)
Quarter: 2011Q4

REPORT INFORMATION
  Report Type: 
  Country: None (occurrence: None)
  Receive Date: 20111222
  Receipt Date: 20111208
  Transmission Date: 20120403
  Serious: Yes (Other)
  Sender: FDA-Public Use
  Company Number: PHFR2011GB00862

PATIENT
  Age: 60 Year

DRUGS (7)
  1. METFORMIN HCL [Suspect]
     Dosage: 1500 MG, QD
  2. ALLOPURINOL [Suspect]
     Dosage: 300 MG, QD
  3. MIRTAZAPINE [Suspect]
     Indication: DEPRESSION
     Dosage: UNK DF, UNK
  4. DOXAZOSIN MESYLATE [Suspect]
     Dosage: 4 MG, QD
  5. VALSARTAN [Suspect]
     Dosage: 120 MG, QD
  6. COLCHICINE [Suspect]
     Dosage: 1 MG, QD
  7. CETIRIZINE [Suspect]
     Dosage: 10 MG, QD

REACTIONS (1)
  - PANCREATITIS ACUTE [None]
